FAERS Safety Report 11191688 (Version 1)
Quarter: 2015Q2

REPORT INFORMATION
  Report Type: Spontaneous
  Country: TR (occurrence: None)
  Receive Date: 20150612
  Receipt Date: 20150612
  Transmission Date: 20150821
  Serious: Yes (Life-Threatening)
  Sender: FDA-Public Use
  Company Number: 2015COR00114

PATIENT
  Age: 14 Year
  Sex: Male

DRUGS (1)
  1. ALPRAZOLAM (ALPRAZOLAM) UNKNOWN [Suspect]
     Active Substance: ALPRAZOLAM
     Indication: GENERALISED ANXIETY DISORDER

REACTIONS (7)
  - Aggression [None]
  - Paradoxical drug reaction [None]
  - Anger [None]
  - Irritability [None]
  - Suicidal behaviour [None]
  - Suicidal ideation [None]
  - Intentional self-injury [None]
